FAERS Safety Report 23509225 (Version 1)
Quarter: 2024Q1

REPORT INFORMATION
  Report Type: Spontaneous
  Country: US (occurrence: None)
  Receive Date: 20240209
  Receipt Date: 20240209
  Transmission Date: 20240410
  Serious: Yes (Death)
  Sender: FDA-Public Use
  Company Number: None

PATIENT
  Age: 57 Year
  Sex: Male

DRUGS (18)
  1. ENVARSUS XR [Suspect]
     Active Substance: TACROLIMUS
     Indication: Renal transplant
     Dosage: FREQUENCY : DAILY;?
     Route: 048
  2. MYCOPHENOLIC ACID [Suspect]
     Active Substance: MYCOPHENOLIC ACID
     Dosage: FREQUENCY : TWICE A DAY;?
     Route: 048
  3. Atovaquone 750 mg /5 ml susp [Concomitant]
  4. Bumetanide 2 mg tabs [Concomitant]
  5. Cefpodoxime pro 200 mg tablets [Concomitant]
  6. Ciprofloxacin 500 mg tabs [Concomitant]
  7. Diltiazem CD120 mg  caps [Concomitant]
  8. Envarsus XR 1MG TABS [Concomitant]
  9. Envarsus XR 4 MG TABS [Concomitant]
  10. hydralazine 25 MG TABS [Concomitant]
  11. linezolid 600 MG TABS [Concomitant]
  12. METRONIDAZOLE [Concomitant]
     Active Substance: METRONIDAZOLE
  13. mycophenolic ACID 180 MG dr TABS [Concomitant]
  14. Omeprazole 20 mg caps [Concomitant]
  15. prednisone 5 mg tabs [Concomitant]
  16. Prevymis 480 mg tabs [Concomitant]
  17. Valacyclovir 500 mg tabs [Concomitant]
  18. Sulfameth/Trimethoprim 400 mg -80 mg tabs [Concomitant]

REACTIONS (3)
  - Hypoxia [None]
  - Cardiac arrest [None]
  - Acute respiratory failure [None]

NARRATIVE: CASE EVENT DATE: 20231226
